FAERS Safety Report 23813235 (Version 1)
Quarter: 2024Q2

REPORT INFORMATION
  Report Type: Spontaneous
  Country: TR (occurrence: TR)
  Receive Date: 20240503
  Receipt Date: 20240503
  Transmission Date: 20240716
  Serious: Yes (Hospitalization, Other)
  Sender: FDA-Public Use
  Company Number: TR-IPCA LABORATORIES LIMITED-IPC-2024-TR-001066

PATIENT

DRUGS (1)
  1. WARFARIN [Suspect]
     Active Substance: WARFARIN
     Indication: Thrombosis
     Dosage: 5 MILLIGRAM, QD
     Route: 065

REACTIONS (2)
  - Oral mucosa haematoma [Recovered/Resolved]
  - Intestinal haematoma [Recovered/Resolved]
